FAERS Safety Report 7743200-5 (Version None)
Quarter: 2011Q3

REPORT INFORMATION
  Report Type: 
  Country: None (occurrence: None)
  Receive Date: 20110912
  Receipt Date: 20110901
  Transmission Date: 20111222
  Serious: Yes (Other)
  Sender: FDA-Public Use
  Company Number: JP-BAXTER-2011BH026231

PATIENT
  Age: 44 Year
  Sex: Male

DRUGS (14)
  1. DOXORUBICIN HCL [Suspect]
     Indication: LIPOSARCOMA
     Route: 065
     Dates: start: 20100701
  2. ANALGESICS [Concomitant]
     Indication: ANALGESIC THERAPY
     Route: 065
  3. CISPLATIN [Suspect]
     Indication: LIPOSARCOMA
     Route: 065
     Dates: start: 20100701
  4. IFOSFAMIDE [Suspect]
     Route: 041
     Dates: start: 20100729, end: 20100731
  5. PRIMPERAN TAB [Suspect]
     Indication: NAUSEA
     Route: 041
     Dates: start: 20100602, end: 20100704
  6. IFOSFAMIDE [Suspect]
     Indication: LIPOSARCOMA
     Route: 041
     Dates: start: 20100704, end: 20100708
  7. IFOSFAMIDE [Suspect]
     Route: 041
     Dates: start: 20100829, end: 20100831
  8. PRIMPERAN TAB [Suspect]
     Indication: LIPOSARCOMA
     Route: 041
     Dates: start: 20100602, end: 20100704
  9. DROPERIDOL [Suspect]
     Indication: LIPOSARCOMA
     Route: 041
     Dates: start: 20100714, end: 20101010
  10. IFOSFAMIDE [Suspect]
     Route: 041
     Dates: start: 20100930, end: 20101002
  11. HALOPERIDOL [Suspect]
     Indication: RESTLESSNESS
     Route: 065
     Dates: end: 20100101
  12. IFOSFAMIDE [Suspect]
     Route: 041
     Dates: start: 20101208, end: 20101210
  13. DROPERIDOL [Suspect]
     Indication: NAUSEA
     Route: 041
     Dates: start: 20100714, end: 20101010
  14. ETOPOSIDE [Suspect]
     Indication: LIPOSARCOMA
     Route: 065
     Dates: start: 20100701

REACTIONS (1)
  - AKATHISIA [None]
